FAERS Safety Report 8417578-3 (Version None)
Quarter: 2012Q2

REPORT INFORMATION
  Report Type: 
  Country: None (occurrence: None)
  Receive Date: 20120606
  Receipt Date: 20120529
  Transmission Date: 20120825
  Serious: No
  Sender: FDA-Public Use
  Company Number: US-B.I. PHARMACEUTICALS,INC./RIDGEFIELD-2012-BP-09767BP

PATIENT
  Sex: Female
  Weight: 51.4 kg

DRUGS (11)
  1. LIPITOR [Concomitant]
     Indication: TYPE V HYPERLIPIDAEMIA
     Dosage: 20 MG
  2. OCUVITE EXTRA [Concomitant]
     Indication: EYE DISORDER
  3. IMDUR [Concomitant]
     Indication: CONGESTIVE CARDIOMYOPATHY
     Dosage: 30 MG
  4. CALCIUM [Concomitant]
     Indication: OSTEOPOROSIS
     Dosage: 1200 MG
  5. ALENDRONATE SODIUM [Concomitant]
     Indication: OSTEOPOROSIS
     Dosage: 10 MG
  6. FUROSEMIDE [Concomitant]
     Indication: CONGESTIVE CARDIOMYOPATHY
     Dosage: 20 MG
  7. LANOXIN [Concomitant]
     Indication: CONGESTIVE CARDIOMYOPATHY
     Dosage: 0.125 MG
  8. VALTREX [Concomitant]
     Indication: DERMATITIS
     Dosage: 500 MG
  9. PRADAXA [Suspect]
     Indication: ATRIAL FIBRILLATION
     Dosage: 300 MG
     Route: 048
     Dates: start: 20110826, end: 20120223
  10. COREG CR [Concomitant]
     Indication: CONGESTIVE CARDIOMYOPATHY
     Dosage: 10 MG
  11. LISINOPRIL [Concomitant]
     Indication: CONGESTIVE CARDIOMYOPATHY
     Dosage: 10 MG

REACTIONS (2)
  - RECTAL HAEMORRHAGE [None]
  - HAEMORRHOIDS [None]
